FAERS Safety Report 6249716-5 (Version None)
Quarter: 2009Q2

REPORT INFORMATION
  Report Type: 
  Country: None (occurrence: None)
  Receive Date: 20090625
  Receipt Date: 20090625
  Transmission Date: 20091009
  Serious: Yes (Disabling, Other)
  Sender: FDA-Public Use
  Company Number: None

PATIENT
  Age: 66 Year
  Sex: Male
  Weight: 86.1834 kg

DRUGS (5)
  1. LEVAQUIN [Suspect]
     Indication: CHRONIC OBSTRUCTIVE PULMONARY DISEASE
     Dosage: 7 1 PER DAY PO
     Route: 048
     Dates: start: 20090315, end: 20090322
  2. LEVAQUIN [Suspect]
     Indication: PNEUMONIA
     Dosage: 7 1 PER DAY PO
     Route: 048
     Dates: start: 20090315, end: 20090322
  3. LEVAQUIN [Suspect]
     Indication: UPPER RESPIRATORY TRACT INFECTION
     Dosage: 7 1 PER DAY PO
     Route: 048
     Dates: start: 20090315, end: 20090322
  4. LEVAQUIN [Suspect]
     Indication: BRONCHITIS CHRONIC
     Dosage: 5 1 PER DAY PO
     Route: 048
     Dates: start: 20090326, end: 20090331
  5. PREDNISONE [Concomitant]

REACTIONS (1)
  - TENDON RUPTURE [None]
